FAERS Safety Report 15210120 (Version 1)
Quarter: 2018Q3

REPORT INFORMATION
  Report Type: Spontaneous
  Country: US (occurrence: US)
  Receive Date: 20180629
  Receipt Date: 20180629
  Transmission Date: 20181010
  Serious: No
  Sender: FDA-Public Use
  Company Number: None

PATIENT
  Age: 36 Year
  Sex: Female
  Weight: 60.75 kg

DRUGS (1)
  1. FLUTICASONE. [Suspect]
     Active Substance: FLUTICASONE
     Indication: SEASONAL ALLERGY
     Dosage: ?          OTHER STRENGTH:MCG PER SPRAY;QUANTITY:1 SPRAY(S);?
     Route: 045
     Dates: start: 20171127, end: 20180622

REACTIONS (2)
  - Product use issue [None]
  - Instillation site haemorrhage [None]

NARRATIVE: CASE EVENT DATE: 20171127
